FAERS Safety Report 21528633 (Version 6)
Quarter: 2022Q4

REPORT INFORMATION
  Report Type: Report from Study
  Country: JP (occurrence: None)
  Receive Date: 20221031
  Receipt Date: 20221227
  Transmission Date: 20230113
  Serious: Yes (Hospitalization)
  Sender: FDA-Public Use
  Company Number: JP-Eisai Medical Research-EC-2022-126845

PATIENT
  Age: 59 Year
  Sex: Male
  Weight: 56.7 kg

DRUGS (17)
  1. LENVATINIB [Suspect]
     Active Substance: LENVATINIB
     Indication: Clear cell renal cell carcinoma
     Dosage: STARTING DOSE: 20 MG, FLUCTUATED DOSAGE
     Route: 048
     Dates: start: 20220222, end: 20221024
  2. PEMBROLIZUMAB [Suspect]
     Active Substance: PEMBROLIZUMAB
     Indication: Clear cell renal cell carcinoma
     Route: 042
     Dates: start: 20220809, end: 20220920
  3. QUAVONLIMAB [Suspect]
     Active Substance: QUAVONLIMAB
     Indication: Clear cell renal cell carcinoma
     Dosage: QUAVONLIMAB (MK-1308) 25MG + PEMBROLIZUMAB (MK-3475) 400MG
     Route: 042
     Dates: start: 20220222, end: 20220628
  4. SENNOSIDES A AND B [Concomitant]
     Active Substance: SENNOSIDES A AND B
     Dates: start: 202111
  5. ALOSENN [SENNOSIDE A+B] [Concomitant]
     Dates: start: 202111
  6. XYLOCAINE DENTAL WITH EPINEPHRINE [Concomitant]
     Dates: start: 20220217
  7. HEPARINOID [Concomitant]
     Dates: start: 20220222
  8. KERATINAMIN [UREA] [Concomitant]
     Dates: start: 20220222
  9. SODIUM GUALENATE MONOHYDRATE [Concomitant]
     Active Substance: SODIUM GUALENATE MONOHYDRATE
     Route: 061
     Dates: start: 20220222
  10. GUAIAZULENE [Concomitant]
     Active Substance: GUAIAZULENE
     Dates: start: 20220315
  11. LULICONAZOLE [Concomitant]
     Active Substance: LULICONAZOLE
     Dates: start: 20220322
  12. LOCOID [Concomitant]
     Active Substance: HYDROCORTISONE BUTYRATE
     Dates: start: 20220426
  13. LOXOPROFEN [Concomitant]
     Active Substance: LOXOPROFEN
     Dates: start: 20220607
  14. KETOPROFEN [Concomitant]
     Active Substance: KETOPROFEN
     Dates: start: 20220607
  15. CALONAL [Concomitant]
     Active Substance: ACETAMINOPHEN
     Dates: start: 20220607
  16. NEXIUM [Concomitant]
     Active Substance: ESOMEPRAZOLE MAGNESIUM
     Dates: start: 20220628
  17. PEMBROLIZUMAB [Suspect]
     Active Substance: PEMBROLIZUMAB

REACTIONS (1)
  - Skin disorder [Recovering/Resolving]

NARRATIVE: CASE EVENT DATE: 20221021
